FAERS Safety Report 6251924-4 (Version None)
Quarter: 2009Q2

REPORT INFORMATION
  Report Type: 
  Country: None (occurrence: None)
  Receive Date: 20090630
  Receipt Date: 20090618
  Transmission Date: 20091009
  Serious: Yes (Death)
  Sender: FDA-Public Use
  Company Number: US-ELI_LILLY_AND_COMPANY-US200906004364

PATIENT
  Age: 41 Year
  Sex: Male

DRUGS (6)
  1. PROZAC [Suspect]
     Dosage: UNK, UNKNOWN
     Route: 065
  2. BUPRENORPHINE HCL [Concomitant]
     Dosage: UNK, UNKNOWN
     Route: 065
  3. COCAINE HYDROCHLORIDE [Concomitant]
     Dosage: UNK, UNKNOWN
     Route: 065
  4. SEROQUEL [Concomitant]
     Dosage: UNK, UNKNOWN
     Route: 065
  5. LAMICTAL [Concomitant]
     Dosage: UNK, UNKNOWN
     Route: 065
  6. AFRIN /00070001/ [Concomitant]
     Dosage: UNK, UNKNOWN
     Route: 065

REACTIONS (2)
  - ACCIDENT [None]
  - INJURY [None]
